FAERS Safety Report 8784903 (Version 3)
Quarter: 2013Q1

REPORT INFORMATION
  Report Type: Report from Study
  Country: US (occurrence: US)
  Receive Date: 20120914
  Receipt Date: 20130118
  Transmission Date: 20140127
  Serious: Yes (Hospitalization)
  Sender: FDA-Public Use
  Company Number: US-US-EMD SERONO, INC.-7159947

PATIENT
  Age: 56 Year
  Sex: Female
  Weight: 109 kg

DRUGS (4)
  1. REBIF [Suspect]
     Indication: MULTIPLE SCLEROSIS
     Route: 058
     Dates: start: 20120222
  2. VIMPAT [Concomitant]
     Indication: CONVULSION
  3. ADVIL [Concomitant]
     Indication: PREMEDICATION
  4. XANAX [Concomitant]
     Indication: PRODUCT USED FOR UNKNOWN INDICATION

REACTIONS (11)
  - Bronchial hyperreactivity [Not Recovered/Not Resolved]
  - Urinary tract infection [Unknown]
  - Nerve compression [Not Recovered/Not Resolved]
  - Multiple sclerosis relapse [Unknown]
  - Band sensation [Not Recovered/Not Resolved]
  - Muscular weakness [Recovering/Resolving]
  - Fall [Unknown]
  - Muscle spasticity [Not Recovered/Not Resolved]
  - Injection site erythema [Unknown]
  - Fatigue [Not Recovered/Not Resolved]
  - Headache [Not Recovered/Not Resolved]
